FAERS Safety Report 12423725 (Version 1)
Quarter: 2016Q2

REPORT INFORMATION
  Report Type: Spontaneous
  Country: US (occurrence: None)
  Receive Date: 20160531
  Receipt Date: 20160531
  Transmission Date: 20160815
  Serious: Yes (Life-Threatening)
  Sender: FDA-Public Use
  Company Number: None

PATIENT
  Age: 46 Year
  Sex: Female
  Weight: 53.07 kg

DRUGS (6)
  1. MULTI-VITAMIN [Concomitant]
     Active Substance: .ALPHA.-TOCOPHEROL ACETATE, DL-\ASCORBIC ACID\CYANOCOBALAMIN\FLUORIDE ION\FOLIC ACID\NIACIN\PYRIDOXINE\RIBOFLAVIN\THIAMINE\VITAMIN A\VITAMIN D
  2. DOXYCYCLINE. [Concomitant]
     Active Substance: DOXYCYCLINE
  3. ALLEGRA-D [Concomitant]
     Active Substance: FEXOFENADINE\PSEUDOEPHEDRINE
  4. SOOLANTRA [Suspect]
     Active Substance: IVERMECTIN
     Indication: RASH
     Dosage: 1 ^PEA-SIZED AMOUNT  APPLIED TO A SURFACE, USUALLY THE SKIN
     Route: 061
     Dates: start: 20160526, end: 20160527
  5. ACIDOPHILUS [Concomitant]
     Active Substance: LACTOBACILLUS ACIDOPHILUS
  6. MSM [Concomitant]
     Active Substance: DIMETHYL SULFONE

REACTIONS (3)
  - Fatigue [None]
  - Road traffic accident [None]
  - Impaired driving ability [None]

NARRATIVE: CASE EVENT DATE: 20160527
